FAERS Safety Report 18001274 (Version 1)
Quarter: 2020Q3

REPORT INFORMATION
  Report Type: Spontaneous
  Country: US (occurrence: US)
  Receive Date: 20200709
  Receipt Date: 20200709
  Transmission Date: 20201103
  Serious: Yes (Hospitalization)
  Sender: FDA-Public Use
  Company Number: US-JNJFOC-20200707640

PATIENT
  Age: 69 Year
  Sex: Female
  Weight: 90.25 kg

DRUGS (3)
  1. ADEMPAS [Suspect]
     Active Substance: RIOCIGUAT
     Indication: PULMONARY ARTERIAL HYPERTENSION
     Dosage: 2.5 MG, TID
     Route: 048
  2. XARELTO [Suspect]
     Active Substance: RIVAROXABAN
     Indication: PRODUCT USED FOR UNKNOWN INDICATION
     Dosage: UNK
     Route: 048
  3. ADEMPAS [Suspect]
     Active Substance: RIOCIGUAT
     Indication: PULMONARY ARTERIAL HYPERTENSION
     Dosage: UNK
     Dates: start: 20190702

REACTIONS (6)
  - Contusion [Unknown]
  - Oedema peripheral [Not Recovered/Not Resolved]
  - Haematoma [Recovering/Resolving]
  - Intestinal obstruction [Unknown]
  - Intestinal obstruction [Unknown]
  - Limb injury [Unknown]

NARRATIVE: CASE EVENT DATE: 202001
